FAERS Safety Report 6868528-2 (Version None)
Quarter: 2010Q3

REPORT INFORMATION
  Report Type: 
  Country: None (occurrence: None)
  Receive Date: 20100722
  Receipt Date: 20080602
  Transmission Date: 20110219
  Serious: No
  Sender: FDA-Public Use
  Company Number: US-PFIZER INC-2008047284

PATIENT
  Sex: Female

DRUGS (4)
  1. CHANTIX [Suspect]
     Dates: start: 20080520
  2. TOPROL-XL [Concomitant]
  3. XANAX [Concomitant]
  4. METFORMIN [Concomitant]

REACTIONS (3)
  - ABDOMINAL DISTENSION [None]
  - DYSGEUSIA [None]
  - MALAISE [None]
